FAERS Safety Report 23781514 (Version 1)
Quarter: 2024Q2

REPORT INFORMATION
  Report Type: Spontaneous
  Country: NL (occurrence: NL)
  Receive Date: 20240425
  Receipt Date: 20240425
  Transmission Date: 20240716
  Serious: Yes (Other)
  Sender: FDA-Public Use
  Company Number: None

PATIENT
  Age: 32 Year
  Sex: Female

DRUGS (4)
  1. CELESTONE CHRONODOSE [Suspect]
     Active Substance: BETAMETHASONE ACETATE\BETAMETHASONE SODIUM PHOSPHATE
     Indication: Premature labour
     Dosage: 4 MG/ML.12 MG I.M PER DAY FOR 2 DAYS (INFUSION)
     Route: 030
     Dates: start: 20110601, end: 20110601
  2. ATOSIBAN [Suspect]
     Active Substance: ATOSIBAN
     Indication: Premature labour
     Dosage: LOADING DOSE OF 6.75 MG, FOLLOWED BY A DOSE OF 18 MG/HOUR FOR 3 HRS THEN WITH 6 MG/HOUR FOR 45 HRS
     Route: 042
     Dates: start: 20110622, end: 20110622
  3. ATOSIBAN [Suspect]
     Active Substance: ATOSIBAN
     Indication: Tocolysis
     Dosage: 18MG/HR FOR THREE HOURS
     Route: 042
     Dates: start: 20110622, end: 20110622
  4. ATOSIBAN [Suspect]
     Active Substance: ATOSIBAN
     Dosage: 6 MG/HR FOR 45 HOURS
     Route: 042
     Dates: start: 20110622, end: 20110624

REACTIONS (2)
  - Acute pulmonary oedema [Recovered/Resolved]
  - Exposure during pregnancy [Recovered/Resolved]

NARRATIVE: CASE EVENT DATE: 20110601
